FAERS Safety Report 4613168-9 (Version None)
Quarter: 2005Q1

REPORT INFORMATION
  Report Type: 
  Country: None (occurrence: None)
  Receive Date: 20050316
  Receipt Date: 20050302
  Transmission Date: 20050727
  Serious: Yes (Other)
  Sender: FDA-Public Use
  Company Number: USA050392215

PATIENT
  Sex: Female

DRUGS (6)
  1. HUMALOG MIX 75/25 [Suspect]
     Dosage: 100 U/3 DAY
  2. HUMALOG [Suspect]
  3. GLUCOPHAGE [Concomitant]
  4. LANTUS [Concomitant]
  5. AVANDAMET [Concomitant]
  6. ACTOS (PIOGLITAZONE HYDROCHOLORIDE) [Concomitant]

REACTIONS (4)
  - ANEURYSM [None]
  - BLOOD GLUCOSE INCREASED [None]
  - INFLUENZA [None]
  - INSULIN RESISTANCE [None]
